FAERS Safety Report 19572433 (Version 4)
Quarter: 2022Q3

REPORT INFORMATION
  Report Type: Report from Study
  Country: DO (occurrence: DO)
  Receive Date: 20210716
  Receipt Date: 20220810
  Transmission Date: 20221027
  Serious: Yes (Other)
  Sender: FDA-Public Use
  Company Number: NVSC2020DO344155

PATIENT
  Age: 36 Year
  Sex: Female

DRUGS (5)
  1. KISQALI [Suspect]
     Active Substance: RIBOCICLIB
     Indication: Breast cancer
     Dosage: 600 MG, QD
     Route: 048
     Dates: start: 20200514, end: 20210314
  2. KISQALI [Suspect]
     Active Substance: RIBOCICLIB
     Dosage: 600 MG, Q24H
     Route: 048
     Dates: start: 20210405, end: 20210414
  3. ZOLEDRONIC ACID [Suspect]
     Active Substance: ZOLEDRONIC ACID
     Indication: Product used for unknown indication
     Dosage: UNK
     Route: 065
  4. PREGABALIN [Suspect]
     Active Substance: PREGABALIN
     Indication: Product used for unknown indication
     Dosage: UNK
     Route: 065
  5. DEXONE [Concomitant]
     Indication: Product used for unknown indication
     Dosage: TAKES TWO TABLETS
     Route: 065

REACTIONS (8)
  - Second primary malignancy [Unknown]
  - Bone cancer [Unknown]
  - Metastases to spine [Unknown]
  - Tumour marker increased [Not Recovered/Not Resolved]
  - Spinal disorder [Unknown]
  - Malaise [Not Recovered/Not Resolved]
  - Pain [Unknown]
  - Dizziness [Recovering/Resolving]

NARRATIVE: CASE EVENT DATE: 20200514
